FAERS Safety Report 4509448-8 (Version None)
Quarter: 2005Q1

REPORT INFORMATION
  Report Type: 
  Country: None (occurrence: None)
  Receive Date: 20041025
  Receipt Date: 20040726
  Transmission Date: 20050727
  Serious: Yes (Hospitalization)
  Sender: FDA-Public Use
  Company Number: US-JNJFOC-20040201839

PATIENT
  Age: 73 Year
  Sex: Female
  Weight: 113.3993 kg

DRUGS (19)
  1. REMICADE [Suspect]
     Indication: RHEUMATOID ARTHRITIS
     Dosage: INTRAVENOUS
     Route: 042
     Dates: start: 20031203
  2. REMICADE [Suspect]
     Indication: RHEUMATOID ARTHRITIS
     Dosage: INTRAVENOUS
     Route: 042
     Dates: start: 20031218
  3. REMICADE [Suspect]
     Indication: RHEUMATOID ARTHRITIS
     Dosage: INTRAVENOUS
     Route: 042
     Dates: start: 20040115
  4. REMICADE [Suspect]
     Indication: RHEUMATOID ARTHRITIS
     Dosage: INTRAVENOUS
     Route: 042
     Dates: start: 20040304
  5. REMICADE [Suspect]
  6. REMICADE [Suspect]
  7. REMICADE [Suspect]
  8. REMICADE [Suspect]
  9. REMICADE [Suspect]
  10. METHOTREXATE SODIUM [Suspect]
     Indication: RHEUMATOID ARTHRITIS
     Dosage: 17.5 MG, IN 1 WEEK, ORAL
     Route: 048
  11. CELEBREX [Concomitant]
  12. CALCIUM (CALCIUM) [Concomitant]
  13. PREDNISONE [Concomitant]
  14. LISINOPRIL [Concomitant]
  15. CARTIA XT [Concomitant]
  16. HYDROCHLOROTHIAZIDE [Concomitant]
  17. COUMADIN [Concomitant]
  18. FLOVENT [Concomitant]
  19. FOLATE (FOLATE SODIUM) [Concomitant]

REACTIONS (3)
  - INTERSTITIAL LUNG DISEASE [None]
  - RENAL FAILURE ACUTE [None]
  - VIRAL INFECTION [None]
